FAERS Safety Report 18412971 (Version 11)
Quarter: 2021Q1

REPORT INFORMATION
  Report Type: Report from Study
  Country: KR (occurrence: KR)
  Receive Date: 20201022
  Receipt Date: 20210104
  Transmission Date: 20210419
  Serious: Yes (Hospitalization)
  Sender: FDA-Public Use
  Company Number: KR-CELLTRION INC.-2020KR029285

PATIENT

DRUGS (49)
  1. TRUXIMA [Suspect]
     Active Substance: RITUXIMAB-ABBS
     Dosage: 570 MG (100 MG STRENGTH)
     Route: 042
     Dates: start: 20201105, end: 20201105
  2. MICARDIS [Concomitant]
     Active Substance: TELMISARTAN
     Dosage: 1 TABLET, QD
     Route: 048
     Dates: start: 20201117, end: 20201117
  3. MOTILITONE [Concomitant]
     Active Substance: HERBALS
     Indication: EPIGASTRIC DISCOMFORT
  4. NEXIUM I.V. [Concomitant]
     Active Substance: ESOMEPRAZOLE SODIUM
     Indication: EPIGASTRIC DISCOMFORT
  5. ACALABRUTINIB. [Suspect]
     Active Substance: ACALABRUTINIB
     Indication: DIFFUSE LARGE B-CELL LYMPHOMA
     Dosage: 200 MILLIGRAM, BID
     Route: 048
     Dates: start: 20201008, end: 20201014
  6. ACALABRUTINIB. [Suspect]
     Active Substance: ACALABRUTINIB
     Dosage: UNK
     Dates: start: 20201021, end: 20201112
  7. LENALIDOMIDE [Suspect]
     Active Substance: LENALIDOMIDE
     Indication: DIFFUSE LARGE B-CELL LYMPHOMA
     Dosage: 20 MILLIGRAM/DAY, CYCLIC
     Dates: start: 20201008, end: 20201008
  8. OCUMETHOLONE [Concomitant]
     Indication: MACULAR FIBROSIS
     Dosage: 1 DROP, BID
     Route: 031
     Dates: start: 20200806
  9. GLIATAMIN [Concomitant]
     Active Substance: CHOLINE ALFOSCERATE
     Indication: PROPHYLAXIS
     Dosage: 1 TABLET, BID
     Route: 048
     Dates: start: 20201004, end: 20201117
  10. LEVOTENSION [Concomitant]
     Indication: HYPERTENSION
     Dosage: 1 TABLET, QD
     Route: 048
     Dates: start: 20201005, end: 20201104
  11. LIVALO [Concomitant]
     Active Substance: PITAVASTATIN CALCIUM
     Indication: HYPERLIPIDAEMIA
     Dosage: 1 TABLET, QD
     Route: 048
     Dates: start: 20181008
  12. PLETAAL [Concomitant]
     Active Substance: CILOSTAZOL
     Indication: ANGINA PECTORIS
     Dosage: 1 TABLET, QD
     Route: 048
     Dates: start: 20200806
  13. NEXIUM I.V. [Concomitant]
     Active Substance: ESOMEPRAZOLE SODIUM
     Indication: PROPHYLAXIS
     Dosage: 1 DOSAGE FORM, QD
     Route: 048
     Dates: start: 20201010
  14. TACENOL [Concomitant]
     Indication: PAIN
     Dosage: 1 TABLET, TID
     Route: 048
     Dates: start: 20201008, end: 20201014
  15. PANCRON [DIMETICONE;HEMICELLULASE;OX BILE;PANCREATIN] [Concomitant]
     Indication: PROPHYLAXIS
     Dosage: 1 DOSAGE FORM, QD
     Route: 048
     Dates: start: 20201113, end: 20201113
  16. K?CONTIN CONTINUS [Concomitant]
     Indication: HYPOKALAEMIA
  17. PHAZYME [Concomitant]
     Active Substance: DIMETHICONE 410
     Indication: PROPHYLAXIS
     Dosage: 1 DOSAGE FORM, TID
     Route: 048
     Dates: start: 20201126
  18. NEURONTIN [Concomitant]
     Active Substance: GABAPENTIN
     Indication: DIFFUSE LARGE B-CELL LYMPHOMA
     Dosage: 1 DOSAGE FORM, BID
     Route: 048
     Dates: start: 20201128
  19. OMAPONE PERI [Concomitant]
     Indication: PROPHYLAXIS
     Dosage: 500 ML, QD
     Route: 042
     Dates: start: 20201128, end: 20201128
  20. TRUXIMA [Suspect]
     Active Substance: RITUXIMAB-ABBS
     Dosage: 570 MG (500 MG STRENGTH)
     Route: 042
     Dates: start: 20201105, end: 20201105
  21. ASPIRIN. [Concomitant]
     Active Substance: ASPIRIN
     Indication: ANGINA PECTORIS
     Dosage: 1 TABLET, QD
     Route: 048
     Dates: start: 20180711
  22. CRAVIT [Concomitant]
     Active Substance: LEVOFLOXACIN
     Indication: MACULAR FIBROSIS
     Dosage: 1 DROP, QD
     Route: 031
     Dates: start: 20200806
  23. OMNARIS [Concomitant]
     Active Substance: CICLESONIDE
     Indication: EPISTAXIS
  24. SANCUSO [Concomitant]
     Active Substance: GRANISETRON
     Indication: PROPHYLAXIS OF NAUSEA AND VOMITING
     Dosage: 1 PATCH, QD VIA DERMAL
     Route: 061
     Dates: start: 20201010
  25. STILNOX [Concomitant]
     Active Substance: ZOLPIDEM TARTRATE
     Indication: INSOMNIA
     Dosage: 0.5 DOSAGE FORM, QD
     Route: 048
     Dates: start: 20201122, end: 20201122
  26. WINUF [Concomitant]
     Indication: PROPHYLAXIS
     Dosage: 1085 ML, QD
     Route: 042
     Dates: start: 20201130, end: 20201204
  27. MICARDIS [Concomitant]
     Active Substance: TELMISARTAN
     Indication: HYPERTENSION
     Dosage: 1 TABLET, QD
     Route: 048
     Dates: start: 20201005, end: 20201104
  28. VASTINAN MR [Concomitant]
     Indication: ANGINA PECTORIS
     Dosage: 1 TABLET, QD
     Route: 048
     Dates: start: 20181007
  29. MUCOSTA [Concomitant]
     Active Substance: REBAMIPIDE
     Indication: EPIGASTRIC DISCOMFORT
  30. TACENOL [Concomitant]
     Dosage: 1 TABLET, TID
     Route: 048
     Dates: start: 20201105, end: 20201105
  31. OMNARIS [Concomitant]
     Active Substance: CICLESONIDE
     Indication: PROPHYLAXIS
     Dosage: 1 PUMP, QD
     Route: 045
     Dates: start: 20200917
  32. TRAST [Concomitant]
     Indication: PAIN
     Dosage: 1 PATCH, QD DERMAL
     Route: 061
     Dates: start: 20200917
  33. PAMISOL [ACETYLCYSTEINE;ALANINE;ARGININE;GLYCINE;HISTIDINE;ISOLEUCINE; [Concomitant]
     Dosage: 500 ML, QD
     Route: 042
     Dates: start: 20201121
  34. PANCRON [DIMETICONE;HEMICELLULASE;OX BILE;PANCREATIN] [Concomitant]
     Dosage: 1 DOSAGE FORM, QD
     Route: 048
     Dates: start: 20201124, end: 20201124
  35. GLIATAMIN [Concomitant]
     Active Substance: CHOLINE ALFOSCERATE
     Indication: COGNITIVE DISORDER
  36. MUCOSTA [Concomitant]
     Active Substance: REBAMIPIDE
     Indication: PROPHYLAXIS
     Dosage: 1 TABLET, TID
     Route: 048
     Dates: start: 20180817, end: 20201104
  37. K?CONTIN CONTINUS [Concomitant]
     Indication: PROPHYLAXIS
     Dosage: 2 DOSAGE FORM, BID
     Route: 048
     Dates: start: 20201121, end: 20201122
  38. MEDILAC DS [Concomitant]
     Indication: PROPHYLAXIS
     Dosage: 1 DOSAGE FORM, TID
     Route: 048
     Dates: start: 20201127
  39. XEROVA [CALCIUM CHLORIDE;CARMELLOSE SODIUM;MAGNESIUM CHLORIDE;POTASSIU [Concomitant]
     Indication: PROPHYLAXIS
     Dosage: 1 DROP, QD VIA GARGLE
     Dates: start: 20200916
  40. XEROVA [CALCIUM CHLORIDE;CARMELLOSE SODIUM;MAGNESIUM CHLORIDE;POTASSIU [Concomitant]
     Indication: MUCOSAL INFLAMMATION
  41. PAMISOL [ACETYLCYSTEINE;ALANINE;ARGININE;GLYCINE;HISTIDINE;ISOLEUCINE; [Concomitant]
     Indication: PROPHYLAXIS
     Dosage: 500 ML, QD
     Route: 042
     Dates: start: 20201107, end: 20201115
  42. SMOFKABIVEN [Concomitant]
     Active Substance: AMINO ACIDS\DEXTROSE\ELECTROLYTES NOS\SOYBEAN OIL
     Indication: PROPHYLAXIS
     Dosage: 986 ML, QD
     Route: 042
     Dates: start: 20201129, end: 20201129
  43. TRUXIMA [Suspect]
     Active Substance: RITUXIMAB-ABBS
     Indication: DIFFUSE LARGE B-CELL LYMPHOMA
     Dosage: 570 MG QD (375 MG/M2,BSA 1.52), 4 WEEKS CYCLE
     Route: 042
     Dates: start: 20201008, end: 20201008
  44. LENALIDOMIDE [Suspect]
     Active Substance: LENALIDOMIDE
     Dosage: UNK
     Dates: end: 20201113
  45. CAVID [CALCIUM CARBONATE;COLECALCIFEROL] [Concomitant]
     Indication: OSTEOPOROSIS
     Dosage: 1 TABLET, QD
     Route: 048
     Dates: start: 20201004
  46. MOTILITONE [Concomitant]
     Active Substance: HERBALS
     Indication: PROPHYLAXIS
     Dosage: 1 TABLET, BID
     Route: 048
     Dates: start: 20190103, end: 20201112
  47. TARGIN [Concomitant]
     Active Substance: NALOXONE HYDROCHLORIDE\OXYCODONE HYDROCHLORIDE
     Indication: PAIN
     Dosage: 1 TABLET, BID
     Route: 048
     Dates: start: 20201005, end: 20201105
  48. MAXITROL [Concomitant]
     Active Substance: DEXAMETHASONE\NEOMYCIN SULFATE\POLYMYXIN B SULFATE
     Indication: MACULAR FIBROSIS
     Dosage: 1 DROP, QD
     Route: 031
     Dates: start: 20200111
  49. MEGACE [Concomitant]
     Active Substance: MEGESTROL ACETATE
     Indication: PROPHYLAXIS
     Dosage: 20 ML, QD
     Route: 048
     Dates: start: 20201110

REACTIONS (4)
  - Aspergillus infection [Recovering/Resolving]
  - Nausea [Recovered/Resolved]
  - Vomiting [Recovered/Resolved]
  - Overdose [Unknown]

NARRATIVE: CASE EVENT DATE: 20201011
